FAERS Safety Report 23686616 (Version 2)
Quarter: 2024Q2

REPORT INFORMATION
  Report Type: Spontaneous
  Country: IT (occurrence: IT)
  Receive Date: 20240329
  Receipt Date: 20240404
  Transmission Date: 20240716
  Serious: Yes (Hospitalization, Other)
  Sender: FDA-Public Use
  Company Number: IT-Accord-414235

PATIENT
  Age: 63 Year
  Sex: Male

DRUGS (1)
  1. TACROLIMUS [Suspect]
     Active Substance: TACROLIMUS
     Indication: Immunosuppressant drug therapy
     Dosage: 0.032 MG/KG/DAY
     Dates: start: 2023, end: 2023

REACTIONS (7)
  - Neurotoxicity [Recovered/Resolved]
  - Dysarthria [Recovered/Resolved]
  - Dysmetria [Recovered/Resolved]
  - Aprosody [Recovering/Resolving]
  - Muscle spasticity [Recovering/Resolving]
  - Language disorder [Recovering/Resolving]
  - Hyperreflexia [Recovering/Resolving]

NARRATIVE: CASE EVENT DATE: 20230101
